FAERS Safety Report 8298506-0 (Version None)
Quarter: 2012Q2

REPORT INFORMATION
  Report Type: 
  Country: None (occurrence: None)
  Receive Date: 20120419
  Receipt Date: 20120117
  Transmission Date: 20120825
  Serious: No
  Sender: FDA-Public Use
  Company Number: US-ABBOTT-12P-163-0895036-00

PATIENT
  Sex: Male
  Weight: 47.67 kg

DRUGS (6)
  1. FLOVENT [Concomitant]
     Indication: ASTHMA
  2. VENTOLIN [Concomitant]
     Indication: ASTHMA
  3. XANAX [Concomitant]
     Indication: GASTROOESOPHAGEAL REFLUX DISEASE
  4. LUPRON [Suspect]
     Indication: PRECOCIOUS PUBERTY
     Dates: start: 20120112
  5. HYDROCORTISONE [Concomitant]
     Indication: ADRENOGENITAL SYNDROME
  6. FLORINEF [Concomitant]
     Indication: ADRENOGENITAL SYNDROME

REACTIONS (3)
  - SCROTAL PAIN [None]
  - TESTICULAR PAIN [None]
  - ABASIA [None]
